FAERS Safety Report 22605101 (Version 1)
Quarter: 2023Q2

REPORT INFORMATION
  Report Type: Spontaneous
  Country: US (occurrence: None)
  Receive Date: 20230614
  Receipt Date: 20230614
  Transmission Date: 20230722
  Serious: No
  Sender: FDA-Public Use
  Company Number: None

PATIENT
  Age: 51 Year
  Sex: Female
  Weight: 112.5 kg

DRUGS (3)
  1. KERANIQUE FOR WOMEN [Suspect]
     Active Substance: MINOXIDIL
     Indication: Alopecia
     Dosage: FREQUENCY : DAILY;?
     Route: 061
     Dates: start: 20230501, end: 20230614
  2. Multi vitamin with iron [Concomitant]
  3. D-mannose Collagen [Concomitant]

REACTIONS (6)
  - Lethargy [None]
  - Trichodynia [None]
  - Depression [None]
  - Palpitations [None]
  - Headache [None]
  - Apathy [None]
